FAERS Safety Report 7072932 (Version 7)
Quarter: 2016Q4

REPORT INFORMATION
  Report Type: Report from Study
  Country: JP (occurrence: JP)
  Receive Date: 20090805
  Receipt Date: 20161222
  Transmission Date: 20170207
  Serious: Yes (Hospitalization, Other)
  Sender: FDA-Public Use
  Company Number: PHHY2009JP13357

PATIENT
  Age: 14 Year
  Sex: Male
  Weight: 16 kg

DRUGS (71)
  1. CERTICAN [Suspect]
     Active Substance: EVEROLIMUS
     Dosage: 7.5 MG, UNK
     Route: 048
     Dates: start: 20090210, end: 20090316
  2. CERTICAN [Suspect]
     Active Substance: EVEROLIMUS
     Dosage: 3.5 MG, QD
     Route: 048
     Dates: start: 20080823, end: 20080906
  3. CERTICAN [Suspect]
     Active Substance: EVEROLIMUS
     Dosage: 4.75 MG, QD
     Route: 048
     Dates: start: 20080928, end: 20080930
  4. CERTICAN [Suspect]
     Active Substance: EVEROLIMUS
     Dosage: 6.5 MG, QD
     Route: 048
     Dates: start: 20081202, end: 20090110
  5. CERTICAN [Suspect]
     Active Substance: EVEROLIMUS
     Dosage: 7.5 MG, QD
     Route: 048
     Dates: start: 20090210, end: 20090316
  6. CERTICAN [Suspect]
     Active Substance: EVEROLIMUS
     Dosage: 9.75 MG, QD
     Route: 048
     Dates: start: 20091111, end: 20091207
  7. CERTICAN [Suspect]
     Active Substance: EVEROLIMUS
     Route: 048
     Dates: start: 20130626, end: 20130708
  8. INOVAN [Suspect]
     Active Substance: DOPAMINE HYDROCHLORIDE
     Indication: CARDIAC FAILURE CONGESTIVE
     Dosage: UNK UKN, UNK
     Route: 065
     Dates: start: 20080902, end: 20080917
  9. CERTICAN [Suspect]
     Active Substance: EVEROLIMUS
     Dosage: 5.5 MG DAILY
     Route: 048
     Dates: start: 20081009, end: 20081017
  10. CERTICAN [Suspect]
     Active Substance: EVEROLIMUS
     Dosage: 5.75 MG DAILY
     Route: 048
     Dates: start: 20081018, end: 20081028
  11. CERTICAN [Suspect]
     Active Substance: EVEROLIMUS
     Dosage: 7 MG, QD
     Route: 048
     Dates: start: 20090120, end: 20090209
  12. CERTICAN [Suspect]
     Active Substance: EVEROLIMUS
     Route: 048
     Dates: start: 2011, end: 20111227
  13. CERTICAN [Suspect]
     Active Substance: EVEROLIMUS
     Route: 048
     Dates: start: 20130513, end: 20130625
  14. NEORAL [Concomitant]
     Active Substance: CYCLOSPORINE
     Indication: HEART TRANSPLANT
     Dosage: 225 MG, UNK
     Route: 048
     Dates: start: 199908
  15. CERTICAN [Suspect]
     Active Substance: EVEROLIMUS
     Dosage: 4.5 MG, UNK
     Route: 048
     Dates: start: 20080907, end: 20080916
  16. CERTICAN [Suspect]
     Active Substance: EVEROLIMUS
     Dosage: 4.25 MG, UNK
     Route: 048
     Dates: start: 20080917, end: 20080917
  17. CERTICAN [Suspect]
     Active Substance: EVEROLIMUS
     Dosage: 6.5 MG
     Route: 048
     Dates: start: 20081202, end: 20090110
  18. CERTICAN [Suspect]
     Active Substance: EVEROLIMUS
     Dosage: 7.75 MG, UNK
     Route: 048
     Dates: start: 20091223, end: 20100128
  19. CERTICAN [Suspect]
     Active Substance: EVEROLIMUS
     Dosage: 0.25 MG, QD
     Route: 048
     Dates: start: 20080722, end: 20080725
  20. CERTICAN [Suspect]
     Active Substance: EVEROLIMUS
     Dosage: 1 MG, QD
     Route: 048
     Dates: start: 20080731, end: 20080808
  21. CERTICAN [Suspect]
     Active Substance: EVEROLIMUS
     Dosage: 4.5 MG, QD
     Route: 048
     Dates: start: 20080907, end: 20080916
  22. CERTICAN [Suspect]
     Active Substance: EVEROLIMUS
     Dosage: 8.25 MG, QD
     Route: 048
     Dates: start: 20090704, end: 20090704
  23. CERTICAN [Suspect]
     Active Substance: EVEROLIMUS
     Dosage: 8 MG, QD
     Route: 048
     Dates: start: 20100129, end: 20100209
  24. CERTICAN [Suspect]
     Active Substance: EVEROLIMUS
     Route: 048
     Dates: start: 20120407, end: 20120518
  25. CERTICAN [Suspect]
     Active Substance: EVEROLIMUS
     Route: 048
     Dates: start: 20130709
  26. RENIVACE [Concomitant]
     Active Substance: ENALAPRIL
     Indication: HYPERTENSION
     Dosage: 2.5 MG, UNK
     Route: 065
  27. CERTICAN [Suspect]
     Active Substance: EVEROLIMUS
     Indication: HEART TRANSPLANT
     Dosage: 0.25 MG, UNK
     Route: 048
     Dates: start: 20080722, end: 20080725
  28. CERTICAN [Suspect]
     Active Substance: EVEROLIMUS
     Dosage: 1 MG, UNK
     Route: 048
     Dates: start: 20080731, end: 20080808
  29. CERTICAN [Suspect]
     Active Substance: EVEROLIMUS
     Dosage: 4.75 MG, DAILY
     Route: 048
     Dates: start: 20080928, end: 20080928
  30. CERTICAN [Suspect]
     Active Substance: EVEROLIMUS
     Dosage: 9.75 MG, UNK
     Route: 048
     Dates: start: 20091111, end: 20091207
  31. CERTICAN [Suspect]
     Active Substance: EVEROLIMUS
     Dosage: 4.5 MG, QD
     Route: 048
     Dates: start: 20081001, end: 20081008
  32. CERTICAN [Suspect]
     Active Substance: EVEROLIMUS
     Dosage: 6.75 MG, QD
     Route: 048
     Dates: start: 20090111, end: 20090119
  33. CERTICAN [Suspect]
     Active Substance: EVEROLIMUS
     Dosage: 7.75 MG, QD
     Route: 048
     Dates: start: 20090317, end: 20090529
  34. CERTICAN [Suspect]
     Active Substance: EVEROLIMUS
     Dosage: 8 MG, QD
     Route: 048
     Dates: start: 20090530, end: 20090703
  35. CERTICAN [Suspect]
     Active Substance: EVEROLIMUS
     Route: 048
     Dates: start: 20090726, end: 20091110
  36. DIART [Concomitant]
     Active Substance: AZOSEMIDE
     Indication: CARDIAC FAILURE
     Dosage: 60 MG, UNK
     Route: 048
  37. CERTICAN [Suspect]
     Active Substance: EVEROLIMUS
     Dosage: 2 MG, UNK
     Route: 048
     Dates: start: 20080809, end: 20080822
  38. CERTICAN [Suspect]
     Active Substance: EVEROLIMUS
     Dosage: 3.25 MG, UNK
     Route: 048
     Dates: start: 20080823, end: 20080906
  39. CERTICAN [Suspect]
     Active Substance: EVEROLIMUS
     Dosage: 5.75 MG DAILY
     Route: 048
     Dates: start: 20081018, end: 20081028
  40. CERTICAN [Suspect]
     Active Substance: EVEROLIMUS
     Dosage: 7.75 MG, UNK
     Route: 048
     Dates: start: 20100210
  41. CERTICAN [Suspect]
     Active Substance: EVEROLIMUS
     Dosage: 6 MG, QD
     Route: 048
     Dates: start: 20081029, end: 20081201
  42. CERTICAN [Suspect]
     Active Substance: EVEROLIMUS
     Route: 048
     Dates: start: 20100210, end: 20100909
  43. CERTICAN [Suspect]
     Active Substance: EVEROLIMUS
     Route: 048
     Dates: start: 20111228, end: 20120406
  44. NEORAL [Concomitant]
     Active Substance: CYCLOSPORINE
     Dosage: 100 MG, UNK
     Route: 048
     Dates: end: 20081009
  45. CERTICAN [Suspect]
     Active Substance: EVEROLIMUS
     Dosage: 0.50 MG, UNK
     Route: 048
     Dates: start: 20080726, end: 20080730
  46. CERTICAN [Suspect]
     Active Substance: EVEROLIMUS
     Dosage: 4.5 MG, DAILY
     Route: 048
     Dates: start: 20081001, end: 20081008
  47. CERTICAN [Suspect]
     Active Substance: EVEROLIMUS
     Dosage: 7 MG, UNK
     Route: 048
     Dates: start: 20090120, end: 20090209
  48. CERTICAN [Suspect]
     Active Substance: EVEROLIMUS
     Dosage: 8 MG, UNK
     Route: 048
     Dates: start: 20100129, end: 20100209
  49. CERTICAN [Suspect]
     Active Substance: EVEROLIMUS
     Dosage: 5.75 MG, QD
     Route: 048
     Dates: start: 20081018, end: 20081028
  50. CERTICAN [Suspect]
     Active Substance: EVEROLIMUS
     Dosage: 3 MG, QD
     Route: 048
     Dates: start: 20080918, end: 20080927
  51. CERTICAN [Suspect]
     Active Substance: EVEROLIMUS
     Dosage: 9 MG, QD
     Route: 048
     Dates: start: 20091208, end: 20091222
  52. CERTICAN [Suspect]
     Active Substance: EVEROLIMUS
     Route: 048
     Dates: start: 20100910, end: 2011
  53. CERTICAN [Suspect]
     Active Substance: EVEROLIMUS
     Route: 048
     Dates: start: 20120519, end: 20130512
  54. NEORAL [Concomitant]
     Active Substance: CYCLOSPORINE
     Dosage: 125 MG, UNK
     Route: 048
  55. NEORAL [Concomitant]
     Active Substance: CYCLOSPORINE
     Dosage: 100 MG, UNK
     Route: 048
  56. NEORAL [Concomitant]
     Active Substance: CYCLOSPORINE
     Dosage: 150 MG, UNK
     Route: 048
  57. CERTICAN [Suspect]
     Active Substance: EVEROLIMUS
     Dosage: 7.75 MG, UNK
     Route: 048
     Dates: start: 20090317, end: 20090529
  58. CERTICAN [Suspect]
     Active Substance: EVEROLIMUS
     Dosage: 9 MG, UNK
     Route: 048
     Dates: start: 20091208, end: 20091222
  59. CERTICAN [Suspect]
     Active Substance: EVEROLIMUS
     Dosage: 0.5 MG, QD
     Route: 048
     Dates: start: 20080726, end: 20080730
  60. CERTICAN [Suspect]
     Active Substance: EVEROLIMUS
     Dosage: 5.5 MG, QD
     Route: 048
     Dates: start: 20081009, end: 20081017
  61. NEORAL [Concomitant]
     Active Substance: CYCLOSPORINE
     Dosage: 100 MG, UNK
     Route: 048
  62. NEORAL [Concomitant]
     Active Substance: CYCLOSPORINE
     Dosage: 50 MG, UNK
     Route: 048
  63. ALDACTONE [Concomitant]
     Active Substance: SPIRONOLACTONE
     Indication: PRODUCT USED FOR UNKNOWN INDICATION
     Route: 065
  64. CERTICAN [Suspect]
     Active Substance: EVEROLIMUS
     Dosage: 3 MG, DAILY
     Route: 048
     Dates: start: 20080918, end: 20080927
  65. CERTICAN [Suspect]
     Active Substance: EVEROLIMUS
     Dosage: 6 MG DAILY
     Route: 048
     Dates: start: 20081029, end: 20081201
  66. CERTICAN [Suspect]
     Active Substance: EVEROLIMUS
     Dosage: 6.75 MG, UNK
     Route: 048
     Dates: start: 20090111, end: 20090119
  67. CERTICAN [Suspect]
     Active Substance: EVEROLIMUS
     Dosage: 8 MG, UNK
     Route: 048
     Dates: start: 20100129, end: 20100209
  68. CERTICAN [Suspect]
     Active Substance: EVEROLIMUS
     Dosage: 8.25 MG, UNK
     Route: 048
     Dates: start: 20090704, end: 20091110
  69. CERTICAN [Suspect]
     Active Substance: EVEROLIMUS
     Dosage: 2 MG, QD
     Route: 048
     Dates: start: 20080809, end: 20080822
  70. CERTICAN [Suspect]
     Active Substance: EVEROLIMUS
     Dosage: 4.25 MG, QD
     Route: 048
     Dates: start: 20080917, end: 20080917
  71. CERTICAN [Suspect]
     Active Substance: EVEROLIMUS
     Dosage: 7.75 MG, QD
     Route: 048
     Dates: start: 20091223, end: 20100128

REACTIONS (12)
  - Blood alkaline phosphatase increased [Unknown]
  - Impaired healing [Recovered/Resolved]
  - Bacterial infection [Recovered/Resolved]
  - Pyrexia [Unknown]
  - Subcutaneous abscess [Recovered/Resolved]
  - Appendicitis [Recovered/Resolved]
  - Sepsis [Recovered/Resolved]
  - Stomatitis [Recovering/Resolving]
  - Gamma-glutamyltransferase increased [Unknown]
  - Stomatitis [Unknown]
  - C-reactive protein increased [Recovering/Resolving]
  - Necrosis [Recovered/Resolved]

NARRATIVE: CASE EVENT DATE: 20080822
